FAERS Safety Report 9711619 (Version 1)
Quarter: 2013Q4

REPORT INFORMATION
  Report Type: Spontaneous
  Country: US (occurrence: US)
  Receive Date: 20131126
  Receipt Date: 20131126
  Transmission Date: 20140711
  Serious: No
  Sender: FDA-Public Use
  Company Number: US-BRISTOL-MYERS SQUIBB COMPANY-18783647

PATIENT
  Age: 66 Year
  Sex: Female
  Weight: 76.64 kg

DRUGS (12)
  1. BYDUREON [Suspect]
     Indication: TYPE 2 DIABETES MELLITUS
  2. ALLEGRA [Concomitant]
  3. WARFARIN [Concomitant]
  4. FUROSEMIDE [Concomitant]
  5. KLOR-CON [Concomitant]
  6. GLIMEPIRIDE [Concomitant]
  7. METHIMAZOLE [Concomitant]
  8. PROPANOLOL HYDROCHLORIDE [Concomitant]
  9. LOSARTAN [Concomitant]
  10. TRAMADOL [Concomitant]
  11. CALCIUM + VITAMIN D [Concomitant]
  12. DIGOXIN [Concomitant]

REACTIONS (6)
  - Nausea [Unknown]
  - Constipation [Unknown]
  - Abdominal pain upper [Unknown]
  - Headache [Recovering/Resolving]
  - Injection site mass [Not Recovered/Not Resolved]
  - Pruritus [Recovered/Resolved]
